FAERS Safety Report 8285971-8 (Version None)
Quarter: 2012Q2

REPORT INFORMATION
  Report Type: 
  Country: None (occurrence: None)
  Receive Date: 20120416
  Receipt Date: 20120410
  Transmission Date: 20120825
  Serious: Yes (Life-Threatening, Hospitalization)
  Sender: FDA-Public Use
  Company Number: US-AMGEN-USASP2011049630

PATIENT
  Age: 65 Year
  Sex: Female

DRUGS (2)
  1. PROLIA [Suspect]
     Indication: OSTEOPOROSIS POSTMENOPAUSAL
     Dosage: 60 MG, Q6MO
     Dates: start: 20110913
  2. PROLIA [Suspect]
     Dosage: 60MG, Q6MO
     Dates: start: 20110101

REACTIONS (8)
  - HEADACHE [None]
  - BACK PAIN [None]
  - ABDOMINAL PAIN UPPER [None]
  - ABDOMINAL ADHESIONS [None]
  - PNEUMOTHORAX [None]
  - DYSSTASIA [None]
  - INFLUENZA LIKE ILLNESS [None]
  - CARDIO-RESPIRATORY ARREST [None]
